FAERS Safety Report 13643643 (Version 1)
Quarter: 2017Q2

REPORT INFORMATION
  Report Type: Report from Study
  Country: GB (occurrence: GB)
  Receive Date: 20170612
  Receipt Date: 20170612
  Transmission Date: 20170830
  Serious: Yes (Other)
  Sender: FDA-Public Use
  Company Number: GB-JNJFOC-20170607337

PATIENT
  Age: 33 Year
  Sex: Male

DRUGS (1)
  1. SIMPONI [Suspect]
     Active Substance: GOLIMUMAB
     Indication: PRODUCT USED FOR UNKNOWN INDICATION
     Route: 058

REACTIONS (6)
  - Chills [Unknown]
  - Haematochezia [Unknown]
  - Dyspnoea [Unknown]
  - Diarrhoea [Unknown]
  - Pallor [Unknown]
  - Toothache [Unknown]

NARRATIVE: CASE EVENT DATE: 201705
